FAERS Safety Report 9294821 (Version 2)
Quarter: 2013Q2

REPORT INFORMATION
  Report Type: Spontaneous
  Country: US (occurrence: None)
  Receive Date: 20130514
  Receipt Date: 20130514
  Transmission Date: 20140414
  Serious: Yes (Other)
  Sender: FDA-Public Use
  Company Number: JPI-P-031428

PATIENT
  Age: 65 Year
  Sex: Female
  Weight: 58.51 kg

DRUGS (6)
  1. XYREM [Suspect]
     Indication: INSOMNIA
     Dosage: 4.5 GM (2.25 GM, 2 IN 1 D), ORAL
     Route: 048
     Dates: start: 20120329, end: 2012
  2. LEVETIRACETAM [Concomitant]
  3. PANTOPRAZOLE SODIUM [Concomitant]
  4. TRIAMTERENE/HCTZ [Concomitant]
  5. FUROSEMIDE [Concomitant]
  6. HYDROCODONE [Concomitant]

REACTIONS (12)
  - Rotator cuff repair [None]
  - Joint injury [None]
  - Fall [None]
  - Weight decreased [None]
  - Decreased appetite [None]
  - Blood magnesium decreased [None]
  - Blood potassium decreased [None]
  - Hair growth abnormal [None]
  - Arthropathy [None]
  - Muscle tightness [None]
  - Pain [None]
  - Pain [None]
